FAERS Safety Report 19204583 (Version 2)
Quarter: 2021Q2

REPORT INFORMATION
  Report Type: Spontaneous
  Country: US (occurrence: US)
  Receive Date: 20210503
  Receipt Date: 20210610
  Transmission Date: 20210717
  Serious: No
  Sender: FDA-Public Use
  Company Number: US-SA-2021SA142255

PATIENT
  Age: 70 Year
  Sex: Female

DRUGS (1)
  1. DUPIXENT [Suspect]
     Active Substance: DUPILUMAB
     Indication: SLEEP APNOEA SYNDROME
     Dosage: 300 MG, QOW
     Route: 058
     Dates: start: 20210317

REACTIONS (8)
  - Product use in unapproved indication [Unknown]
  - Palpitations [Unknown]
  - Paraesthesia [Unknown]
  - Hypoaesthesia [Unknown]
  - Weight increased [Unknown]
  - Injection site reaction [Unknown]
  - Rash [Unknown]
  - Stomatitis [Unknown]

NARRATIVE: CASE EVENT DATE: 2021
